FAERS Safety Report 7012870-1 (Version None)
Quarter: 2010Q3

REPORT INFORMATION
  Report Type: 
  Country: None (occurrence: None)
  Receive Date: 20100915
  Receipt Date: 20100324
  Transmission Date: 20110219
  Serious: Yes (Other)
  Sender: FDA-Public Use
  Company Number: US-WYE-H14335910

PATIENT
  Age: 30 Year
  Sex: Female

DRUGS (1)
  1. ADVIL [Suspect]
     Indication: HEADACHE
     Dosage: 2 CAPSULES X 2, ORAL
     Route: 048
     Dates: start: 20100322, end: 20100322

REACTIONS (2)
  - DYSGEUSIA [None]
  - THROAT IRRITATION [None]
